FAERS Safety Report 19208428 (Version 1)
Quarter: 2021Q2

REPORT INFORMATION
  Report Type: Report from Study
  Country: US (occurrence: US)
  Receive Date: 20210503
  Receipt Date: 20210503
  Transmission Date: 20210717
  Serious: Yes (Hospitalization)
  Sender: FDA-Public Use
  Company Number: US-EISAI MEDICAL RESEARCH-EC-2021-092013

PATIENT
  Age: 72 Year
  Sex: Female
  Weight: 61 kg

DRUGS (24)
  1. LENVIMA [Suspect]
     Active Substance: LENVATINIB
     Indication: ENDOMETRIAL CANCER
     Route: 048
     Dates: start: 20210125, end: 202104
  2. ALPHA LIPOIC ACID [Concomitant]
     Active Substance: .ALPHA.-LIPOIC ACID
  3. VITAMIN D3 [Concomitant]
     Active Substance: CHOLECALCIFEROL
  4. MUSHROOM [Concomitant]
     Active Substance: CULTIVATED MUSHROOM
  5. COENZYME Q10 [Concomitant]
     Active Substance: DIETARY SUPPLEMENT\UBIDECARENONE
  6. DIPYRIDAMOLE. [Concomitant]
     Active Substance: DIPYRIDAMOLE
  7. BLACK SEED OIL [Concomitant]
  8. TURMERIC [Concomitant]
     Active Substance: HERBALS\TURMERIC
  9. VITAMIN B COMPLEX [Concomitant]
     Active Substance: CYANOCOBALAMIN\DEXPANTHENOL\NIACINAMIDE\PYRIDOXINE HYDROCHLORIDE\RIBOFLAVIN 5^-PHOSPHATE SODIUM\THIAMINE HYDROCHLORIDE\VITAMIN B COMPLEX
  10. MISTLETOE [Concomitant]
     Active Substance: VISCUM ALBUM FRUITING TOP
  11. ASPIRIN. [Concomitant]
     Active Substance: ASPIRIN
  12. CURCUMIN [Concomitant]
     Active Substance: CURCUMIN
  13. PULMICORT TURBUHALER [Concomitant]
     Active Substance: BUDESONIDE
  14. GREEN TEA EXTRACT [Concomitant]
  15. ALBUTEROL. [Concomitant]
     Active Substance: ALBUTEROL
  16. MELATONIN [Concomitant]
     Active Substance: MELATONIN
  17. RESVERATROL [Concomitant]
     Active Substance: DIETARY SUPPLEMENT\RESVERATROL
  18. ZINC. [Concomitant]
     Active Substance: ZINC
  19. ESTRADIOL. [Concomitant]
     Active Substance: ESTRADIOL
  20. ANASTROZOLE. [Concomitant]
     Active Substance: ANASTROZOLE
  21. NITROFURANTOIN. [Concomitant]
     Active Substance: NITROFURANTOIN
  22. KEYTRUDA [Concomitant]
     Active Substance: PEMBROLIZUMAB
  23. SIMVASTATIN. [Concomitant]
     Active Substance: SIMVASTATIN
  24. SOLIFENACIN SUCCINATE. [Concomitant]
     Active Substance: SOLIFENACIN SUCCINATE

REACTIONS (3)
  - Diarrhoea [Recovering/Resolving]
  - Dizziness [Unknown]
  - Blood potassium decreased [Unknown]

NARRATIVE: CASE EVENT DATE: 2021
